FAERS Safety Report 6475529 (Version 3)
Quarter: 2019Q4

REPORT INFORMATION
  Report Type: Spontaneous
  Country: US (occurrence: US)
  Receive Date: 20071127
  Receipt Date: 20191111
  Transmission Date: 20200122
  Serious: Yes (Other)
  Sender: FDA-Public Use
  Company Number: US-SANOFI-SYNTHELABO-A03200706596

PATIENT
  Age: 46 Year
  Sex: Female

DRUGS (7)
  1. AMBIEN [Suspect]
     Active Substance: ZOLPIDEM TARTRATE
     Indication: INSOMNIA
     Dosage: 6.25 MG,HS
     Route: 048
  2. LAMOTRIGINE. [Concomitant]
     Active Substance: LAMOTRIGINE
     Dosage: UNK UNK,UNK
     Route: 048
  3. LEVOTHYROXINE. [Concomitant]
     Active Substance: LEVOTHYROXINE
     Dosage: UNK UNK,UNK
     Route: 048
  4. PAROXETINE. [Concomitant]
     Active Substance: PAROXETINE
     Dosage: UNK UNK,UNK
     Route: 048
  5. ASPIRIN BAYER [Concomitant]
     Active Substance: ASPIRIN
     Dosage: UNK UNK,UNK
     Route: 048
  6. TRAZODONE [Concomitant]
     Active Substance: TRAZODONE HYDROCHLORIDE
     Dosage: UNK UNK,UNK
     Route: 048
  7. NADOLOL. [Concomitant]
     Active Substance: NADOLOL
     Dosage: UNK UNK,UNK
     Route: 048

REACTIONS (6)
  - Eating disorder [Unknown]
  - Weight increased [Unknown]
  - Somnambulism [Unknown]
  - Amnesia [Unknown]
  - Snoring [Unknown]
  - Sleep apnoea syndrome [Unknown]
